FAERS Safety Report 21717953 (Version 1)
Quarter: 2022Q4

REPORT INFORMATION
  Report Type: Spontaneous
  Country: US (occurrence: US)
  Receive Date: 20221212
  Receipt Date: 20221212
  Transmission Date: 20230112
  Serious: No
  Sender: FDA-Public Use
  Company Number: US-Global Blood Therapeutics Inc-US-GBT-22-02786

PATIENT
  Sex: Female

DRUGS (2)
  1. OXBRYTA [Suspect]
     Active Substance: VOXELOTOR
     Indication: Sickle cell disease
     Route: 048
     Dates: start: 20210516, end: 20220420
  2. HYDROXYUREA [Concomitant]
     Active Substance: HYDROXYUREA
     Indication: Haemoglobin S
     Dates: start: 20120726

REACTIONS (1)
  - Laboratory test abnormal [Unknown]
